FAERS Safety Report 5583658-3 (Version None)
Quarter: 2008Q1

REPORT INFORMATION
  Report Type: 
  Country: None (occurrence: None)
  Receive Date: 20080102
  Receipt Date: 20071204
  Transmission Date: 20080703
  Serious: Yes (Hospitalization)
  Sender: FDA-Public Use
  Company Number: 20074288

PATIENT
  Age: 25 Year
  Sex: Male

DRUGS (1)
  1. LIORESAL [Suspect]
     Indication: MUSCLE SPASTICITY
     Dosage: 4500 MCG, DAILY, INTRATHECAL
     Route: 037

REACTIONS (7)
  - CATHETER RELATED COMPLICATION [None]
  - COGNITIVE DISORDER [None]
  - CONDITION AGGRAVATED [None]
  - GENERAL PHYSICAL HEALTH DETERIORATION [None]
  - IRRITABILITY [None]
  - MUSCLE SPASTICITY [None]
  - PHARMACEUTICAL PRODUCT COMPLAINT [None]
